FAERS Safety Report 18354351 (Version 2)
Quarter: 2020Q4

REPORT INFORMATION
  Report Type: Report from Study
  Country: US (occurrence: US)
  Receive Date: 20201007
  Receipt Date: 20201012
  Transmission Date: 20210114
  Serious: No
  Sender: FDA-Public Use
  Company Number: NVSC2020US268158

PATIENT
  Sex: Female

DRUGS (1)
  1. PIQRAY [Suspect]
     Active Substance: ALPELISIB
     Indication: BREAST CANCER
     Dosage: 300 MG, QD
     Route: 048
     Dates: start: 20200915, end: 20200928

REACTIONS (9)
  - Ageusia [Unknown]
  - Abdominal pain upper [Recovered/Resolved]
  - Anaemia [Not Recovered/Not Resolved]
  - Eating disorder [Unknown]
  - Oral pain [Recovering/Resolving]
  - Taste disorder [Recovering/Resolving]
  - Nausea [Recovered/Resolved]
  - Rash [Recovering/Resolving]
  - Decreased appetite [Recovering/Resolving]
